FAERS Safety Report 19593522 (Version 1)
Quarter: 2021Q3

REPORT INFORMATION
  Report Type: Spontaneous
  Country: US (occurrence: US)
  Receive Date: 20210722
  Receipt Date: 20210722
  Transmission Date: 20211014
  Serious: Yes (Hospitalization, Other)
  Sender: FDA-Public Use
  Company Number: US-ASTRAZENECA-2021A623411

PATIENT
  Age: 72 Year
  Sex: Female

DRUGS (2)
  1. SYMBICORT [Suspect]
     Active Substance: BUDESONIDE\FORMOTEROL FUMARATE DIHYDRATE
     Indication: CHRONIC OBSTRUCTIVE PULMONARY DISEASE
     Dosage: 160/4.5 UG 2 PUFFS TWO TIMES A DAY
     Route: 055
  2. MONTELUKAST [Concomitant]
     Active Substance: MONTELUKAST SODIUM
     Indication: ASTHMA

REACTIONS (14)
  - General physical health deterioration [Unknown]
  - Bone density decreased [Unknown]
  - Fracture [Unknown]
  - Joint dislocation [Unknown]
  - Glaucoma [Unknown]
  - Hypokalaemia [Unknown]
  - Mobility decreased [Unknown]
  - Cataract [Unknown]
  - Hallucination [Unknown]
  - Fall [Unknown]
  - Amnesia [Unknown]
  - Intervertebral disc degeneration [Not Recovered/Not Resolved]
  - Intellectual disability [Not Recovered/Not Resolved]
  - Product use issue [Unknown]

NARRATIVE: CASE EVENT DATE: 201912
